FAERS Safety Report 18862145 (Version 1)
Quarter: 2021Q1

REPORT INFORMATION
  Report Type: Report from Study
  Country: None (occurrence: US)
  Receive Date: 20210209
  Receipt Date: 20210209
  Transmission Date: 20210420
  Serious: Yes (Hospitalization, Other)
  Sender: FDA-Public Use
  Company Number: US-ABBVIE-21K-163-3763110-00

PATIENT
  Sex: Male

DRUGS (6)
  1. ENALAPRIL [Concomitant]
     Active Substance: ENALAPRIL
     Indication: BLOOD PRESSURE MEASUREMENT
  2. NAPROXEN. [Concomitant]
     Active Substance: NAPROXEN
     Indication: PRODUCT USED FOR UNKNOWN INDICATION
     Dosage: AS NEEDED
  3. HUMIRA [Suspect]
     Active Substance: ADALIMUMAB
     Indication: PSORIASIS
     Route: 058
     Dates: start: 2007, end: 2017
  4. HUMIRA [Suspect]
     Active Substance: ADALIMUMAB
     Dosage: STOP DATE 2020 OR 2021
     Route: 058
     Dates: start: 202008
  5. HUMIRA [Suspect]
     Active Substance: ADALIMUMAB
     Dosage: 1 EVERY 3 OR 4 WEEKS
     Route: 058
     Dates: start: 2017, end: 202003
  6. HUMIRA [Suspect]
     Active Substance: ADALIMUMAB
     Dosage: DRUG START DATE 2020 OR 2021
     Route: 058

REACTIONS (8)
  - Epicondylitis [Recovering/Resolving]
  - Umbilical hernia [Recovered/Resolved]
  - Arthralgia [Recovering/Resolving]
  - Nephrolithiasis [Recovered/Resolved]
  - Nephrolithiasis [Recovered/Resolved]
  - Psoriasis [Recovering/Resolving]
  - Arthralgia [Recovering/Resolving]
  - Umbilical hernia [Recovered/Resolved]

NARRATIVE: CASE EVENT DATE: 2017
